FAERS Safety Report 21582548 (Version 1)
Quarter: 2022Q4

REPORT INFORMATION
  Report Type: Spontaneous
  Country: US (occurrence: US)
  Receive Date: 20221111
  Receipt Date: 20221111
  Transmission Date: 20230113
  Serious: Yes (Hospitalization, Other)
  Sender: FDA-Public Use
  Company Number: US-TEVA-2022-US-2823597

PATIENT
  Age: 42 Year
  Sex: Female

DRUGS (4)
  1. METOCLOPRAMIDE [Suspect]
     Active Substance: METOCLOPRAMIDE
     Indication: Gastroparesis postoperative
     Route: 048
  2. METOCLOPRAMIDE [Suspect]
     Active Substance: METOCLOPRAMIDE
     Route: 042
  3. ERYTHROMYCIN [Interacting]
     Active Substance: ERYTHROMYCIN
     Indication: Gastroparesis postoperative
     Dosage: 750 MILLIGRAM DAILY; IN 3 DOSES
     Route: 065
  4. TACROLIMUS [Interacting]
     Active Substance: TACROLIMUS
     Indication: Immunosuppressant drug therapy
     Dosage: 36 MILLIGRAM DAILY; DIVIDED INTO 2 DOSES
     Route: 065

REACTIONS (4)
  - Drug ineffective [Unknown]
  - Immunosuppressant drug level increased [Unknown]
  - Drug interaction [Unknown]
  - Off label use [Unknown]
